FAERS Safety Report 15964598 (Version 2)
Quarter: 2019Q2

REPORT INFORMATION
  Report Type: Spontaneous
  Country: FR (occurrence: FR)
  Receive Date: 20190215
  Receipt Date: 20190402
  Transmission Date: 20190711
  Serious: Yes (Hospitalization)
  Sender: FDA-Public Use
  Company Number: FR-SUN PHARMACEUTICAL INDUSTRIES LTD-2019RR-199134

PATIENT
  Age: 36 Year
  Sex: Female
  Weight: 55 kg

DRUGS (6)
  1. PARACETAMOL [Suspect]
     Active Substance: ACETAMINOPHEN
     Indication: PAIN
     Dosage: SI BESOIN ()
     Route: 048
  2. ADALATE 20 MG L.P., COMPRIME A LIBERATION PROLONGEE [Suspect]
     Active Substance: NIFEDIPINE
     Indication: MORPHOEA
     Dosage: 2 DOSAGE FORM, DAILY
     Route: 048
     Dates: start: 20181211, end: 20190114
  3. BOSENTAN. [Suspect]
     Active Substance: BOSENTAN
     Indication: MORPHOEA
     Dosage: 2 DOSAGE FORM, DAILY
     Route: 048
     Dates: start: 20181217, end: 20190114
  4. INNOHEP [Suspect]
     Active Substance: TINZAPARIN SODIUM
     Indication: SCLERODERMA
     Dosage: 1 DOSAGE FORM, DAILY
     Route: 058
     Dates: start: 20181211, end: 20190114
  5. KARDEGIC [Suspect]
     Active Substance: ASPIRIN DL-LYSINE
     Indication: MORPHOEA
     Dosage: 1 DOSAGE FORM, DAILY
     Route: 048
     Dates: start: 20181207, end: 20190114
  6. UVEDOSE [Concomitant]
     Active Substance: CHOLECALCIFEROL
     Indication: PRODUCT USED FOR UNKNOWN INDICATION
     Dosage: ()
     Route: 065

REACTIONS (2)
  - Cholestasis [Recovered/Resolved]
  - Hepatocellular injury [Recovered/Resolved]

NARRATIVE: CASE EVENT DATE: 20190115
